FAERS Safety Report 22045193 (Version 1)
Quarter: 2023Q1

REPORT INFORMATION
  Report Type: Spontaneous
  Country: CN (occurrence: CN)
  Receive Date: 20230228
  Receipt Date: 20230228
  Transmission Date: 20230418
  Serious: Yes (Other)
  Sender: FDA-Public Use
  Company Number: CN-PFIZER INC-PV202300035461

PATIENT
  Age: 65 Year
  Sex: Male

DRUGS (1)
  1. ZYVOX [Suspect]
     Active Substance: LINEZOLID
     Indication: Anti-infective therapy
     Dosage: 300 ML, 2X/DAY
     Route: 041
     Dates: start: 20230107, end: 20230122

REACTIONS (5)
  - Platelet count decreased [Recovering/Resolving]
  - Enterobacter infection [Unknown]
  - Red blood cell count decreased [Recovering/Resolving]
  - Bacterial infection [Unknown]
  - Off label use [Unknown]

NARRATIVE: CASE EVENT DATE: 20230107
